FAERS Safety Report 7579189-1 (Version None)
Quarter: 2011Q2

REPORT INFORMATION
  Report Type: 
  Country: None (occurrence: None)
  Receive Date: 20110628
  Receipt Date: 20090212
  Transmission Date: 20111010
  Serious: Yes (Death, Other)
  Sender: FDA-Public Use
  Company Number: US-BAYER-200830512NA

PATIENT
  Age: 29 Year
  Sex: Male
  Weight: 58.5 kg

DRUGS (21)
  1. OMNISCAN [Suspect]
     Indication: VENOGRAM
  2. OMNISCAN [Suspect]
  3. PHOSLO [Concomitant]
  4. MAGNEVIST [Suspect]
     Indication: ANGIOGRAM
     Dosage: 16 ML, ONCE
     Dates: start: 20061030, end: 20061030
  5. OMNISCAN [Suspect]
     Indication: NUCLEAR MAGNETIC RESONANCE IMAGING
     Dosage: 80 ML, ONCE
     Dates: start: 20060919, end: 20060919
  6. COUMADIN [Concomitant]
  7. OMNISCAN [Suspect]
     Dosage: 30 ML, ONCE
     Dates: start: 20060920, end: 20060920
  8. OMNISCAN [Suspect]
  9. OMNISCAN [Suspect]
     Indication: ANGIOGRAM
     Dates: start: 20060831, end: 20060831
  10. GADOLINIUM IN UNSPECIFIED DRUG [Suspect]
     Indication: VENOGRAM
     Dosage: UNK
     Dates: start: 20060918, end: 20060918
  11. INSULIN [Concomitant]
  12. MAGNEVIST [Suspect]
     Indication: NUCLEAR MAGNETIC RESONANCE IMAGING
     Dosage: UNK
     Dates: start: 20050712, end: 20050712
  13. DARBEPOETIN ALFA [Concomitant]
  14. AMLODIPINE [Concomitant]
  15. METOPROLOL TARTRATE [Concomitant]
  16. CELLCEPT [Concomitant]
  17. MAGNEVIST [Suspect]
     Indication: NUCLEAR MAGNETIC RESONANCE IMAGING BRAIN
     Dosage: UNK
     Dates: start: 20050715, end: 20050715
  18. MAGNEVIST [Suspect]
     Dosage: UNK
     Dates: start: 20060126, end: 20060126
  19. NIFEREX [POLYSACCHARIDE-IRON COMPLEX] [Concomitant]
  20. POTASSIUM PHOSPHATES [Concomitant]
  21. LIPITOR [Concomitant]

REACTIONS (25)
  - NEPHROGENIC SYSTEMIC FIBROSIS [None]
  - PAIN OF SKIN [None]
  - SKIN HYPERTROPHY [None]
  - MOBILITY DECREASED [None]
  - OEDEMA PERIPHERAL [None]
  - RASH MACULAR [None]
  - FATIGUE [None]
  - JOINT RANGE OF MOTION DECREASED [None]
  - ARTHRALGIA [None]
  - SKIN FIBROSIS [None]
  - PAIN [None]
  - GENERAL PHYSICAL HEALTH DETERIORATION [None]
  - EXFOLIATIVE RASH [None]
  - JOINT STIFFNESS [None]
  - FIBROSIS [None]
  - SCAR [None]
  - ANXIETY [None]
  - EMOTIONAL DISTRESS [None]
  - ANHEDONIA [None]
  - SKIN TIGHTNESS [None]
  - INJURY [None]
  - QUALITY OF LIFE DECREASED [None]
  - SKIN DISCOLOURATION [None]
  - MUSCULOSKELETAL DISORDER [None]
  - HYPOAESTHESIA [None]
